FAERS Safety Report 24251343 (Version 1)
Quarter: 2024Q3

REPORT INFORMATION
  Report Type: Spontaneous
  Country: JP (occurrence: JP)
  Receive Date: 20240826
  Receipt Date: 20240826
  Transmission Date: 20241016
  Serious: Yes (Hospitalization)
  Sender: ORGANON
  Company Number: JP-ORGANON-O2408JPN001725

PATIENT
  Age: 85 Year
  Sex: Male

DRUGS (1)
  1. CARBIDOPA\LEVODOPA [Suspect]
     Active Substance: CARBIDOPA\LEVODOPA
     Dosage: 300 MG (200 MG IN THE MORNING AND 100 MG IN THE EVENING), TWICE DAILY
     Route: 048

REACTIONS (1)
  - Fracture [Unknown]
